FAERS Safety Report 24341583 (Version 2)
Quarter: 2024Q4

REPORT INFORMATION
  Report Type: Spontaneous
  Country: US (occurrence: US)
  Receive Date: 20240920
  Receipt Date: 20241126
  Transmission Date: 20250115
  Serious: No
  Sender: BIOGEN
  Company Number: US-BIOGEN-2018BI00677210

PATIENT
  Age: 52 Year
  Sex: Female

DRUGS (1)
  1. TECFIDERA [Suspect]
     Active Substance: DIMETHYL FUMARATE
     Indication: Multiple sclerosis
     Route: 050
     Dates: start: 20160506, end: 20160512

REACTIONS (4)
  - White blood cell count decreased [Unknown]
  - White blood cell count increased [Unknown]
  - Rash [Unknown]
  - Flushing [Unknown]

NARRATIVE: CASE EVENT DATE: 20160501
